FAERS Safety Report 17837720 (Version 8)
Quarter: 2020Q3

REPORT INFORMATION
  Report Type: Report from Study
  Country: US (occurrence: US)
  Receive Date: 20200528
  Receipt Date: 20200824
  Transmission Date: 20201103
  Serious: Yes (Death, Hospitalization, Other)
  Sender: FDA-Public Use
  Company Number: US-GILEAD-2020-0457166

PATIENT
  Age: 73 Year
  Sex: Male
  Weight: 71.5 kg

DRUGS (49)
  1. FLUDARABINE [Suspect]
     Active Substance: FLUDARABINE PHOSPHATE
     Indication: BONE MARROW CONDITIONING REGIMEN
     Dosage: 30 MG/M2, QD; ^30^
     Route: 042
     Dates: start: 20200318, end: 20200320
  2. ROXICODONE [Concomitant]
     Active Substance: OXYCODONE HYDROCHLORIDE
     Dosage: 10,MG,AS NECESSARY
     Route: 048
     Dates: start: 20200329, end: 20200416
  3. INSULIN GLARGINE [Concomitant]
     Active Substance: INSULIN GLARGINE
     Indication: DIABETES MELLITUS
     Dosage: UNK
     Dates: start: 20160331, end: 20200424
  4. MORPHINE [Concomitant]
     Active Substance: MORPHINE
     Dosage: 15,MG,AS NECESSARY
     Route: 058
     Dates: start: 20190105, end: 20200418
  5. NOVOLOG [Concomitant]
     Active Substance: INSULIN ASPART
     Dosage: 3,ML,THREE TIMES DAILY
     Route: 058
     Dates: start: 20190106, end: 20200412
  6. PLATELETS [Concomitant]
     Active Substance: HUMAN PLATELET, ALLOGENIC
     Dosage: 1,OTHER,DAILY
     Route: 041
     Dates: start: 20200404, end: 20200404
  7. INSULIN GLARGINE [Concomitant]
     Active Substance: INSULIN GLARGINE
     Dosage: 10,OTHER,DAILY
     Route: 041
     Dates: start: 20200329, end: 20200401
  8. NOVOLOG [Concomitant]
     Active Substance: INSULIN ASPART
     Dosage: 8,OTHER,DAILY
     Route: 041
     Dates: start: 20200408, end: 20200419
  9. NOVOLOG [Concomitant]
     Active Substance: INSULIN ASPART
     Dosage: 8,OTHER,DAILY
     Route: 041
     Dates: start: 20200331, end: 20200401
  10. PROTONIX [Concomitant]
     Active Substance: PANTOPRAZOLE SODIUM
     Dosage: UNK
  11. MIDAZOLAM. [Concomitant]
     Active Substance: MIDAZOLAM
     Dosage: 0.5,MG,OTHER
     Route: 041
     Dates: start: 20200317, end: 20200317
  12. POTASSIUM CHLORIDE. [Concomitant]
     Active Substance: POTASSIUM CHLORIDE
     Dosage: 20,OTHER,DAILY
     Route: 048
     Dates: start: 20200319, end: 20200323
  13. FOSAPREPITANT [Concomitant]
     Active Substance: FOSAPREPITANT
     Dosage: 150,MG,DAILY
     Route: 041
     Dates: start: 20200318, end: 20200318
  14. MS CONTIN [Concomitant]
     Active Substance: MORPHINE SULFATE
     Indication: ABDOMINAL PAIN
  15. LEVAQUIN [Concomitant]
     Active Substance: LEVOFLOXACIN
     Dosage: UNK
     Dates: start: 20200403, end: 20200406
  16. ZOFRAN [Concomitant]
     Active Substance: ONDANSETRON HYDROCHLORIDE
     Dosage: 4,MG,AS NECESSARY
     Route: 048
     Dates: start: 20200329, end: 20200401
  17. AXICABTAGENE CILOLEUCEL [Suspect]
     Active Substance: AXICABTAGENE CILOLEUCEL
     Indication: NON-HODGKIN^S LYMPHOMA
     Dosage: 68 ML, ONCE
     Route: 042
     Dates: start: 20200323, end: 20200323
  18. BACTRIM [Concomitant]
     Active Substance: SULFAMETHOXAZOLE\TRIMETHOPRIM
     Dosage: UNK
     Dates: start: 20190107, end: 20200424
  19. BACTRIM [Concomitant]
     Active Substance: SULFAMETHOXAZOLE\TRIMETHOPRIM
     Dosage: UNK
     Dates: start: 20190329, end: 20200417
  20. ACYCLOVIR [ACICLOVIR] [Concomitant]
     Active Substance: ACYCLOVIR
     Dosage: UNK
     Dates: start: 20190106, end: 20200424
  21. INSULIN GLARGINE [Concomitant]
     Active Substance: INSULIN GLARGINE
     Dosage: 10,OTHER,DAILY
     Route: 041
     Dates: start: 20200411
  22. INSULIN GLARGINE [Concomitant]
     Active Substance: INSULIN GLARGINE
     Dosage: UNK; 25,OTHER,DAILY
     Dates: start: 20200401, end: 20200404
  23. INSULIN GLARGINE [Concomitant]
     Active Substance: INSULIN GLARGINE
     Dosage: 20,OTHER,DAILY
     Route: 041
     Dates: start: 20200329, end: 20200331
  24. PROTONIX [Concomitant]
     Active Substance: PANTOPRAZOLE SODIUM
     Dosage: 40,MG,DAILY
     Route: 048
     Dates: start: 20190106, end: 20200424
  25. RED BLOOD CELLS [Concomitant]
     Active Substance: HUMAN RED BLOOD CELL
     Dosage: 1,OTHER,DAILY
     Route: 041
     Dates: start: 20200329, end: 20200329
  26. SENOKOT [Concomitant]
     Active Substance: SENNOSIDES
     Dosage: 8.6,MG,AS NECESSARY
     Route: 048
     Dates: start: 20190107
  27. MIRALAX [Concomitant]
     Active Substance: POLYETHYLENE GLYCOL 3350
     Dosage: 17,G,AS NECESSARY
     Route: 048
     Dates: start: 20190109, end: 20200424
  28. CEFAZOLIN [Concomitant]
     Active Substance: CEFAZOLIN
     Dosage: 2000,MG,DAILY
     Route: 041
     Dates: start: 20200317, end: 20200317
  29. INSULIN GLARGINE [Concomitant]
     Active Substance: INSULIN GLARGINE
     Dosage: 18,OTHER
     Route: 041
     Dates: start: 20200404, end: 20200409
  30. ZOCOR [Concomitant]
     Active Substance: SIMVASTATIN
     Dosage: 20,MG,DAILY
     Route: 048
     Dates: start: 20190105, end: 20200424
  31. NOVOLOG [Concomitant]
     Active Substance: INSULIN ASPART
     Dosage: 1,OTHER,DAILY
     Route: 041
     Dates: start: 20200401
  32. NOVOLOG [Concomitant]
     Active Substance: INSULIN ASPART
     Dosage: 4,OTHER,DAILY
     Route: 041
     Dates: start: 20200404, end: 20200417
  33. SENOKOT [Concomitant]
     Active Substance: SENNOSIDES
     Dosage: 17.2,MG,AS NECESSARY
     Route: 048
     Dates: start: 20200328, end: 20200414
  34. LACTULOSE. [Concomitant]
     Active Substance: LACTULOSE
     Dosage: 15,ML,AS NECESSARY
     Route: 048
     Dates: start: 20200212
  35. LACTULOSE. [Concomitant]
     Active Substance: LACTULOSE
     Dosage: 20,G,DAILY
     Route: 048
     Dates: start: 20200415
  36. PLATELETS [Concomitant]
     Active Substance: HUMAN PLATELET, ALLOGENIC
     Dosage: 1,OTHER,DAILY
     Route: 041
     Dates: start: 20200330, end: 20200330
  37. ROXICODONE [Concomitant]
     Active Substance: OXYCODONE HYDROCHLORIDE
     Indication: ABDOMINAL PAIN
     Dosage: UNK
     Dates: start: 20190105, end: 20200424
  38. ZOFRAN [Concomitant]
     Active Substance: ONDANSETRON HYDROCHLORIDE
     Dosage: 8,MG,AS NECESSARY
     Route: 048
     Dates: start: 20190107, end: 20200424
  39. PROCHLORPERAZINE. [Concomitant]
     Active Substance: PROCHLORPERAZINE
     Dosage: 20,MG,DAILY
     Route: 041
     Dates: start: 20200318, end: 20200326
  40. CYCLOPHOSPHAMIDE. [Suspect]
     Active Substance: CYCLOPHOSPHAMIDE
     Indication: BONE MARROW CONDITIONING REGIMEN
     Dosage: 500 MG/M2, QD; ^500^
     Route: 042
     Dates: start: 20200318, end: 20200320
  41. LEVAQUIN [Concomitant]
     Active Substance: LEVOFLOXACIN
     Dosage: UNK
     Dates: end: 202003
  42. FLUCONAZOLE. [Concomitant]
     Active Substance: FLUCONAZOLE
     Dosage: UNK
  43. ACYCLOVIR [ACICLOVIR] [Concomitant]
     Active Substance: ACYCLOVIR
     Dosage: 800,MG,TWICE DAILY
     Dates: start: 20200329, end: 20200404
  44. MORPHINE [Concomitant]
     Active Substance: MORPHINE
     Dosage: 15,MG,AS NECESSARY
     Route: 058
     Dates: start: 20190105, end: 20200418
  45. NOVOLOG [Concomitant]
     Active Substance: INSULIN ASPART
     Dosage: 6,OTHER,DAILY
     Route: 041
     Dates: start: 20200402, end: 20200419
  46. RED BLOOD CELLS [Concomitant]
     Active Substance: HUMAN RED BLOOD CELL
     Dosage: 1,OTHER,DAILY
     Route: 041
     Dates: start: 20200331, end: 20200331
  47. MIRALAX [Concomitant]
     Active Substance: POLYETHYLENE GLYCOL 3350
     Dosage: 17,G,AS NECESSARY
     Route: 048
     Dates: start: 20190109, end: 20200424
  48. PROCHLORPERAZINE. [Concomitant]
     Active Substance: PROCHLORPERAZINE
     Dosage: UNK
     Dates: start: 20200330, end: 20200407
  49. FENTANYL. [Concomitant]
     Active Substance: FENTANYL
     Dosage: 25,OTHER,AS NECESSARY
     Route: 041
     Dates: start: 20200317, end: 20200317

REACTIONS (7)
  - Cytokine release syndrome [Recovered/Resolved]
  - Hypotension [Not Recovered/Not Resolved]
  - Hypotension [Recovered/Resolved]
  - Pyrexia [Recovered/Resolved]
  - COVID-19 [Fatal]
  - Pneumonia [Not Recovered/Not Resolved]
  - Pyrexia [Recovered/Resolved]

NARRATIVE: CASE EVENT DATE: 20200327
